FAERS Safety Report 5716736-6 (Version None)
Quarter: 2008Q2

REPORT INFORMATION
  Report Type: 
  Country: None (occurrence: None)
  Receive Date: 20080424
  Receipt Date: 20070720
  Transmission Date: 20081010
  Serious: No
  Sender: FDA-Public Use
  Company Number: US-BAYER-200711524BWH

PATIENT
  Age: 73 Year
  Sex: Male

DRUGS (5)
  1. LEVITRA [Suspect]
     Indication: DRUG USE FOR UNKNOWN INDICATION
     Dosage: TOTAL DAILY DOSE: 20 MG  UNIT DOSE: 20 MG
     Route: 048
     Dates: start: 20070301
  2. LEVITRA [Suspect]
     Dosage: TOTAL DAILY DOSE: 10 MG  UNIT DOSE: 20 MG
     Route: 048
     Dates: start: 20070301
  3. AZITHROMYCIN [Concomitant]
     Indication: SINUSITIS
  4. AZITHROMYCIN [Concomitant]
  5. AFRIN [Concomitant]
     Indication: SINUSITIS

REACTIONS (4)
  - EYE PAIN [None]
  - HEADACHE [None]
  - NERVOUSNESS [None]
  - THINKING ABNORMAL [None]
